FAERS Safety Report 8363226-0 (Version None)
Quarter: 2012Q2

REPORT INFORMATION
  Report Type: 
  Country: None (occurrence: None)
  Receive Date: 20120516
  Receipt Date: 20120509
  Transmission Date: 20120825
  Serious: Yes (Death, Hospitalization)
  Sender: FDA-Public Use
  Company Number: FR-PFIZER INC-2012112655

PATIENT
  Age: 76 Year
  Sex: Female

DRUGS (9)
  1. DOCETAXEL [Suspect]
     Dosage: UNK
     Route: 042
  2. NOVANTRONE [Suspect]
     Dosage: UNK
     Route: 042
  3. ANASTROZOLE [Concomitant]
     Indication: HORMONE THERAPY
     Dosage: 1 DF, 1X/DAY
     Route: 048
  4. CYCLOPHOSPHAMIDE [Suspect]
     Dosage: 9 COURSES AND THEN AGAIN X COURSES
     Route: 042
     Dates: start: 20030101
  5. CARBOPLATIN [Suspect]
     Dosage: UNK
     Route: 042
  6. EPIRUBICIN HYDROCHLORIDE [Suspect]
     Dosage: 75 MG/M2, CYCLIC (9 COURSES)
     Route: 042
     Dates: start: 20030101
  7. FLUOROURACIL [Suspect]
     Dosage: 500 MG/M2, CYCLIC (9 COURSES)
     Route: 042
     Dates: start: 20030101
  8. GEMCITABINE [Suspect]
     Dosage: UNK
     Route: 042
  9. PACLITAXEL [Suspect]
     Dosage: UNK
     Route: 042

REACTIONS (2)
  - ACUTE MYELOID LEUKAEMIA [None]
  - NEOPLASM MALIGNANT [None]
